FAERS Safety Report 8282967-7 (Version None)
Quarter: 2012Q1

REPORT INFORMATION
  Report Type: 
  Country: None (occurrence: None)
  Receive Date: 20120329
  Receipt Date: 20120314
  Transmission Date: 20120608
  Serious: Yes (Hospitalization)
  Sender: FDA-Public Use
  Company Number: 2012031694

PATIENT
  Age: 36 Year
  Sex: Male
  Weight: 78.9259 kg

DRUGS (4)
  1. CYMBALTA [Concomitant]
  2. PRIVIGEN [Suspect]
     Indication: IMMUNE TOLERANCE INDUCTION
     Dosage: (140 G TOTAL INTRAVENOUS (NOT OTHERWISE SPECIFIED)), (INTRAVENOUS (NOT OTHERWISE SPECIFIED))
     Dates: start: 20120313, end: 20120313
  3. NEURONTIN [Concomitant]
  4. PRIVIGEN [Suspect]

REACTIONS (7)
  - OFF LABEL USE [None]
  - URTICARIA [None]
  - RASH GENERALISED [None]
  - DYSPNOEA [None]
  - VENOUS THROMBOSIS [None]
  - SWELLING FACE [None]
  - OEDEMA PERIPHERAL [None]
